FAERS Safety Report 4584416-9 (Version None)
Quarter: 2005Q1

REPORT INFORMATION
  Report Type: 
  Country: None (occurrence: None)
  Receive Date: 20050125
  Receipt Date: 20041108
  Transmission Date: 20050727
  Serious: No
  Sender: FDA-Public Use
  Company Number: USA041183536

PATIENT
  Age: 52 Year
  Sex: Female
  Weight: 36 kg

DRUGS (4)
  1. FORTEO [Suspect]
     Indication: OSTEOPOROSIS
     Dosage: 20 UG/1 DAY
     Dates: start: 20040501
  2. POTASSIUM CHLORIDE [Concomitant]
  3. LIPITOR [Concomitant]
  4. CALCIUM GLUCONATE [Concomitant]

REACTIONS (1)
  - RASH PRURITIC [None]
